FAERS Safety Report 8532592-5 (Version None)
Quarter: 2012Q3

REPORT INFORMATION
  Report Type: 
  Country: None (occurrence: None)
  Receive Date: 20120724
  Receipt Date: 20120718
  Transmission Date: 20120928
  Serious: No
  Sender: FDA-Public Use
  Company Number: US-PFIZER INC-2012174126

PATIENT
  Sex: Male
  Weight: 49.433 kg

DRUGS (3)
  1. HUMULIN 70/30 [Concomitant]
     Indication: DIABETES MELLITUS
     Dosage: 12 IU, 2X/DAY BEFORE MEALS
  2. CHILDREN'S ADVIL [Suspect]
     Indication: PAIN IN EXTREMITY
     Dosage: UNK
     Route: 048
     Dates: start: 20120701, end: 20120701
  3. APIDRA [Concomitant]
     Indication: DIABETES MELLITUS
     Dosage: MINIMUM OF 5 UNITS TO MAXIMUM OF 10 UNITS SIX TIMES A DAY

REACTIONS (3)
  - HYPOAESTHESIA ORAL [None]
  - THROAT IRRITATION [None]
  - GLOSSODYNIA [None]
